FAERS Safety Report 14304078 (Version 1)
Quarter: 2017Q4

REPORT INFORMATION
  Report Type: Spontaneous
  Country: FI (occurrence: FI)
  Receive Date: 20171219
  Receipt Date: 20171219
  Transmission Date: 20180321
  Serious: Yes (Death, Other)
  Sender: FDA-Public Use
  Company Number: FI-OTSUKA-DJ20121823

PATIENT
  Age: 28 Year
  Sex: Male

DRUGS (3)
  1. ABILIFY [Suspect]
     Active Substance: ARIPIPRAZOLE
     Indication: OBSESSIVE-COMPULSIVE DISORDER
     Dosage: 1 DF, UNK
     Route: 048
  2. OLANZAPINE. [Suspect]
     Active Substance: OLANZAPINE
     Indication: OBSESSIVE-COMPULSIVE DISORDER
     Dosage: 5 MG, QD
     Route: 048
  3. PAROXETINE. [Concomitant]
     Active Substance: PAROXETINE
     Indication: OBSESSIVE-COMPULSIVE DISORDER
     Dosage: OPTIPAR 20 MG TABLET OPTIPAR DOSE WAS 40 MG ONCE DAILY PLUS 20 MG ONCE DAILY
     Route: 048

REACTIONS (2)
  - Pulmonary embolism [Fatal]
  - Thrombosis [Fatal]

NARRATIVE: CASE EVENT DATE: 20111025
